FAERS Safety Report 5199933-0 (Version None)
Quarter: 2007Q1

REPORT INFORMATION
  Report Type: 
  Country: None (occurrence: None)
  Receive Date: 20070105
  Receipt Date: 20061231
  Transmission Date: 20070707
  Serious: Yes (Hospitalization)
  Sender: FDA-Public Use
  Company Number: US-BAYER-200710009BWH

PATIENT
  Age: 29 Year
  Sex: Male

DRUGS (5)
  1. LEVITRA [Suspect]
     Indication: ERECTILE DYSFUNCTION
     Dosage: TOTAL DAILY DOSE: 20 MG  UNIT DOSE: 20 MG
     Route: 048
     Dates: start: 20061230
  2. NEURONTIN [Concomitant]
  3. ATIVAN [Concomitant]
  4. AMITRIPTYLINE HCL [Concomitant]
  5. REGLAN [Concomitant]

REACTIONS (2)
  - OEDEMA GENITAL [None]
  - SCROTAL SWELLING [None]
